FAERS Safety Report 5281666-3 (Version None)
Quarter: 2007Q1

REPORT INFORMATION
  Report Type: 
  Country: None (occurrence: None)
  Receive Date: 20070326
  Receipt Date: 20070322
  Transmission Date: 20070707
  Serious: Yes (Death)
  Sender: FDA-Public Use
  Company Number: DAV-AE-MTX-07-012

PATIENT
  Age: 40 Year
  Sex: Male

DRUGS (3)
  1. METHOTREXATE [Suspect]
     Indication: HODGKIN'S DISEASE
     Dosage: IT WEEKLY
     Route: 037
  2. METHOTREXATE [Suspect]
     Indication: HODGKIN'S DISEASE
     Dosage: IV
     Route: 042
  3. ARA-C [Suspect]
     Indication: HODGKIN'S DISEASE
     Dosage: IT
     Route: 037

REACTIONS (8)
  - GENERAL PHYSICAL HEALTH DETERIORATION [None]
  - GLASGOW COMA SCALE ABNORMAL [None]
  - MENINGEAL DISORDER [None]
  - MYELITIS TRANSVERSE [None]
  - MYELOPATHY [None]
  - PARAPLEGIA [None]
  - RESPIRATORY DISTRESS [None]
  - URINARY RETENTION [None]
